FAERS Safety Report 7344373-9 (Version None)
Quarter: 2011Q1

REPORT INFORMATION
  Report Type: 
  Country: None (occurrence: None)
  Receive Date: 20110310
  Receipt Date: 20101228
  Transmission Date: 20110831
  Serious: No
  Sender: FDA-Public Use
  Company Number: A0901664A

PATIENT
  Sex: Male

DRUGS (2)
  1. NICORETTE [Suspect]
     Route: 002
  2. NICODERM [Suspect]
     Indication: SMOKING CESSATION THERAPY
     Route: 062

REACTIONS (1)
  - NICOTINE DEPENDENCE [None]
